FAERS Safety Report 14301293 (Version 2)
Quarter: 2017Q4

REPORT INFORMATION
  Report Type: Report from Study
  Country: GB (occurrence: GB)
  Receive Date: 20171219
  Receipt Date: 20171231
  Transmission Date: 20180321
  Serious: Yes (Other)
  Sender: FDA-Public Use
  Company Number: GB-TEVA-2017-GB-833280

PATIENT
  Age: 49 Year
  Sex: Female

DRUGS (2)
  1. METHOTREXATE. [Suspect]
     Active Substance: METHOTREXATE
     Indication: MYCOSIS FUNGOIDES
     Route: 048
  2. PREDNISOLONE. [Concomitant]
     Active Substance: PREDNISOLONE
     Indication: MYCOSIS FUNGOIDES
     Route: 065

REACTIONS (1)
  - Diffuse large B-cell lymphoma [Recovered/Resolved]
